FAERS Safety Report 6823623-9 (Version None)
Quarter: 2010Q3

REPORT INFORMATION
  Report Type: 
  Country: None (occurrence: None)
  Receive Date: 20100708
  Receipt Date: 20060729
  Transmission Date: 20110219
  Serious: No
  Sender: FDA-Public Use
  Company Number: US-PFIZER INC-2006094790

PATIENT
  Sex: Female
  Weight: 54.88 kg

DRUGS (4)
  1. CHANTIX [Interacting]
     Indication: SMOKING CESSATION THERAPY
     Route: 065
     Dates: start: 20060725
  2. SYNTHROID [Interacting]
     Indication: THYROIDECTOMY
     Route: 065
  3. NICOTINE [Suspect]
     Indication: PRODUCT USED FOR UNKNOWN INDICATION
     Route: 065
  4. ZYRTEC [Concomitant]
     Route: 048

REACTIONS (7)
  - ANXIETY [None]
  - DRUG INTERACTION [None]
  - HEADACHE [None]
  - POOR QUALITY SLEEP [None]
  - RESTLESSNESS [None]
  - SINUS DISORDER [None]
  - TOBACCO USER [None]
